FAERS Safety Report 15231523 (Version 1)
Quarter: 2018Q3

REPORT INFORMATION
  Report Type: Spontaneous
  Country: US (occurrence: US)
  Receive Date: 20180708
  Receipt Date: 20180708
  Transmission Date: 20181010
  Serious: Yes (Other)
  Sender: FDA-Public Use
  Company Number: None

PATIENT
  Age: 43 Year
  Sex: Male
  Weight: 92.25 kg

DRUGS (4)
  1. HAWTHORNE [Concomitant]
  2. CHLORPIRON [Concomitant]
  3. FLUTICASONE PROPIONATE NASAL SPRAY [Suspect]
     Active Substance: FLUTICASONE PROPIONATE
     Indication: SINUSITIS
     Dosage: QUANTITY:120 SPRAY(S);?
     Route: 055
     Dates: start: 20171121, end: 20171221
  4. NORVASC [Concomitant]
     Active Substance: AMLODIPINE BESYLATE

REACTIONS (3)
  - Epistaxis [None]
  - Product contamination physical [None]
  - Product quality issue [None]

NARRATIVE: CASE EVENT DATE: 20171121
